FAERS Safety Report 5940914-4 (Version None)
Quarter: 2008Q4

REPORT INFORMATION
  Report Type: 
  Country: None (occurrence: None)
  Receive Date: 20081104
  Receipt Date: 20081022
  Transmission Date: 20090506
  Serious: Yes (Hospitalization)
  Sender: FDA-Public Use
  Company Number: US-ELI_LILLY_AND_COMPANY-US200810006051

PATIENT
  Sex: Female

DRUGS (27)
  1. BYETTA [Suspect]
     Indication: TYPE 2 DIABETES MELLITUS
     Dosage: 5 UG, 2/D
     Route: 058
     Dates: start: 20070101, end: 20070101
  2. BYETTA [Suspect]
     Dosage: 10 UG, 2/D
     Route: 058
     Dates: start: 20070101
  3. ASPIRIN [Concomitant]
     Indication: PROPHYLAXIS
     Dosage: 81 MG, DAILY (1/D)
     Dates: start: 20060401
  4. COUMADIN [Concomitant]
     Dosage: 7 MG, DAILY (1/D)
     Dates: start: 20040101
  5. COUMADIN [Concomitant]
     Dosage: 50 MG, WEEKLY (1/W)
     Dates: end: 20081019
  6. COUMADIN [Concomitant]
     Dosage: 7 MG, UNK
     Dates: start: 20081020
  7. TRICOR [Concomitant]
     Indication: BLOOD CHOLESTEROL INCREASED
     Dosage: 67 MG, DAILY (1/D)
     Dates: start: 20060101
  8. SINGULAIR [Concomitant]
     Indication: ASTHMA
     Dosage: 10 MG, DAILY (1/D)
     Dates: start: 20060101
  9. AMITRIPTYLINE HCL [Concomitant]
     Indication: SLEEP DISORDER
     Dosage: 50 MG, DAILY (1/D)
     Dates: start: 20060101
  10. PIOGLITAZONE [Concomitant]
     Indication: DIABETES MELLITUS
     Dosage: 45 MG, DAILY (1/D)
     Dates: start: 20060101
  11. LORAZEPAM [Concomitant]
     Indication: DEPRESSION
     Dosage: 0.5 MG, 2/D
     Dates: start: 20040101
  12. CARTIA XT [Concomitant]
     Indication: CARDIAC DISORDER
     Dosage: 180 MG, DAILY (1/D)
     Dates: start: 20040101
  13. ENALAPRIL MALEATE [Concomitant]
     Indication: PROPHYLAXIS
     Dosage: 2.5 MG, DAILY (1/D)
     Dates: start: 20060101
  14. FERROUS SULFATE [Concomitant]
     Indication: ANAEMIA
     Dosage: 325 MG, 2/D
     Dates: start: 20060101
  15. FLEXERIL [Concomitant]
     Indication: MYALGIA
     Dosage: 10 MG, 2/D
     Dates: start: 20080101
  16. FUROSEMIDE [Concomitant]
     Indication: FLUID RETENTION
     Dosage: 20 MG, QOD
     Dates: start: 20050101
  17. LANOXIN [Concomitant]
     Indication: CARDIAC DISORDER
     Dosage: 0.25 MG, DAILY (1/D)
     Dates: start: 20050101
  18. MAGNESIUM OXIDE [Concomitant]
     Indication: BLOOD MAGNESIUM DECREASED
     Dosage: 400 MG, 2/D
     Dates: start: 20080901
  19. NAPROXEN [Concomitant]
     Indication: PAIN
     Dosage: 500 MG, 2/D
     Dates: start: 20070901
  20. PHENERGAN HCL [Concomitant]
     Indication: NAUSEA
     Dosage: 25 MG, DAILY (1/D)
     Dates: start: 20070101
  21. PRILOSEC [Concomitant]
     Dosage: 20 MG, 2/D
     Dates: start: 20050101
  22. WELLBUTRIN SR [Concomitant]
     Indication: DEPRESSION
     Dosage: 150 MG, 2/D
     Dates: start: 20040101
  23. ADVAIR DISKUS 100/50 [Concomitant]
     Indication: ASTHMA
     Dosage: UNK, 2/D
     Route: 055
     Dates: start: 20050101
  24. DURAGESIC-100 [Concomitant]
     Indication: PAIN IN EXTREMITY
     Dosage: 50 MG, 2/W
     Route: 062
  25. IMODIUM [Concomitant]
     Dosage: 2 MG, AS NEEDED
     Dates: start: 19980101
  26. NITROSTAT [Concomitant]
     Indication: CHEST PAIN
     Dosage: 0.4 MG, OTHER
     Route: 060
     Dates: start: 20060101
  27. SENOKOT [Concomitant]
     Indication: CONSTIPATION
     Dosage: UNK, AS NEEDED

REACTIONS (9)
  - BLOOD MAGNESIUM DECREASED [None]
  - CARDIAC FAILURE CONGESTIVE [None]
  - CELLULITIS [None]
  - DYSPNOEA [None]
  - HYPERTENSION [None]
  - SLEEP APNOEA SYNDROME [None]
  - STAPHYLOCOCCAL INFECTION [None]
  - URINARY TRACT INFECTION [None]
  - WOUND SECRETION [None]
